FAERS Safety Report 10003859 (Version 2)
Quarter: 2014Q1

REPORT INFORMATION
  Report Type: Spontaneous
  Country: US (occurrence: US)
  Receive Date: 20140312
  Receipt Date: 20140312
  Transmission Date: 20141002
  Serious: Yes (Other)
  Sender: FDA-Public Use
  Company Number: US-INCYTE CORPORATION-2013IN001676

PATIENT
  Age: 63 Year
  Sex: Male
  Weight: 92.06 kg

DRUGS (7)
  1. JAKAFI [Suspect]
     Indication: MYELOFIBROSIS
     Dosage: 15 MG, BID
     Route: 048
     Dates: start: 201306, end: 20130717
  2. JAKAFI [Suspect]
     Route: 048
  3. OMEPRAZOLE [Concomitant]
  4. ASPIRIN [Concomitant]
     Dosage: 81 MG, UNK
  5. METOPROLOL [Concomitant]
  6. LISINOPRIL W/HYDROCHLOROTHIAZIDE [Concomitant]
  7. ATORVASTATIN [Concomitant]

REACTIONS (2)
  - Platelet count decreased [Recovered/Resolved]
  - Blood count abnormal [Recovered/Resolved]
